FAERS Safety Report 4414001-0 (Version None)
Quarter: 2004Q3

REPORT INFORMATION
  Report Type: 
  Country: None (occurrence: None)
  Receive Date: 20040728
  Receipt Date: 20040709
  Transmission Date: 20050211
  Serious: Yes (Death)
  Sender: FDA-Public Use
  Company Number: GB-JNJFOC-20040702351

PATIENT
  Age: 63 Year
  Sex: Female

DRUGS (6)
  1. REMICADE [Suspect]
     Indication: RHEUMATOID ARTHRITIS
     Dosage: 280 MG, INTRAVENOUS
     Route: 042
     Dates: start: 20020823
  2. LANSOPRAZOLE [Concomitant]
  3. FUROSEMIDE [Concomitant]
  4. ACETAMINOPHEN [Concomitant]
  5. METHOTREXATE [Concomitant]
  6. FOLIC ACID [Concomitant]

REACTIONS (1)
  - DEATH [None]
